FAERS Safety Report 15027258 (Version 1)
Quarter: 2018Q2

REPORT INFORMATION
  Report Type: Report from Study
  Country: None (occurrence: US)
  Receive Date: 20180619
  Receipt Date: 20180619
  Transmission Date: 20180711
  Serious: Yes (Hospitalization)
  Sender: FDA-Public Use
  Company Number: US-ABBVIE-18K-163-2388276-00

PATIENT
  Sex: Female

DRUGS (1)
  1. HUMIRA [Suspect]
     Active Substance: ADALIMUMAB
     Indication: CROHN^S DISEASE
     Route: 058

REACTIONS (12)
  - Renal disorder [Unknown]
  - Urinary tract infection [Unknown]
  - Bladder disorder [Unknown]
  - Dizziness exertional [Unknown]
  - Syncope [Unknown]
  - Balance disorder [Unknown]
  - Clostridium difficile infection [Unknown]
  - Crohn^s disease [Unknown]
  - Butterfly rash [Recovering/Resolving]
  - Stress [Unknown]
  - Arthralgia [Unknown]
  - Epistaxis [Recovering/Resolving]
